FAERS Safety Report 6534342-0 (Version None)
Quarter: 2010Q1

REPORT INFORMATION
  Report Type: 
  Country: None (occurrence: None)
  Receive Date: 20100112
  Receipt Date: 20091207
  Transmission Date: 20100710
  Serious: No
  Sender: FDA-Public Use
  Company Number: US-BAYER-200942246NA

PATIENT
  Age: 42 Year
  Sex: Female

DRUGS (2)
  1. MIRENA [Suspect]
     Indication: DRUG USE FOR UNKNOWN INDICATION
     Dosage: CONTINUOUS DELIVERY
     Route: 015
     Dates: start: 19990101
  2. MIRENA [Suspect]
     Dosage: CONTINUOUS DELIVERY
     Route: 015

REACTIONS (3)
  - AMENORRHOEA [None]
  - MENSTRUATION IRREGULAR [None]
  - VAGINAL HAEMORRHAGE [None]
